FAERS Safety Report 5739720-5 (Version None)
Quarter: 2008Q2

REPORT INFORMATION
  Report Type: 
  Country: None (occurrence: None)
  Receive Date: 20080516
  Receipt Date: 20080507
  Transmission Date: 20081010
  Serious: Yes (Hospitalization)
  Sender: FDA-Public Use
  Company Number: GB-RANBAXY-2008RR-15022

PATIENT

DRUGS (3)
  1. IBUPROFEN TABLETS BP 200MG [Suspect]
  2. EFFEXOR [Suspect]
     Indication: DEPRESSED MOOD
     Dosage: 75 MG, UNK
     Route: 048
  3. ACETAMINOPHEN W/ CODEINE [Concomitant]
     Route: 048

REACTIONS (3)
  - CONDITION AGGRAVATED [None]
  - ERYTHRODERMIC PSORIASIS [None]
  - PHOTOSENSITIVITY REACTION [None]
